FAERS Safety Report 11815967 (Version 1)
Quarter: 2015Q4

REPORT INFORMATION
  Report Type: Report from Study
  Country: FR (occurrence: FR)
  Receive Date: 20151209
  Receipt Date: 20151209
  Transmission Date: 20160305
  Serious: Yes (Other)
  Sender: FDA-Public Use
  Company Number: FR-GILEAD-2015-0185672

PATIENT
  Sex: Female

DRUGS (2)
  1. SOVALDI [Suspect]
     Active Substance: SOFOSBUVIR
     Indication: HEPATITIS C
     Route: 065
  2. DACLATASVIR. [Suspect]
     Active Substance: DACLATASVIR
     Indication: HEPATITIS C
     Route: 065

REACTIONS (6)
  - Purpura [Not Recovered/Not Resolved]
  - Dry mouth [Not Recovered/Not Resolved]
  - Renal disorder [Not Recovered/Not Resolved]
  - Cryoglobulinaemia [Not Recovered/Not Resolved]
  - Glossodynia [Not Recovered/Not Resolved]
  - Vitamin D abnormal [Not Recovered/Not Resolved]

NARRATIVE: CASE EVENT DATE: 20151127
